FAERS Safety Report 7809426-7 (Version None)
Quarter: 2011Q4

REPORT INFORMATION
  Report Type: 
  Country: None (occurrence: None)
  Receive Date: 20111007
  Receipt Date: 20110923
  Transmission Date: 20120403
  Serious: Yes (Death, Disabling)
  Sender: FDA-Public Use
  Company Number: 11-598

PATIENT
  Age: 27 Year
  Sex: Female

DRUGS (4)
  1. CO-DYDRAMOL; DICLOFENAC; FERROUS SULPHATE; IBUPROFEN; [Suspect]
     Dosage: 8G ORAL
     Route: 048
  2. FERROUS SULFATE TAB [Suspect]
     Dosage: ORAL
     Route: 048
  3. DICOLOFENAC [Suspect]
     Dosage: 2800MG ORAL
     Route: 048
  4. IBUPROFEN [Suspect]
     Dosage: 7000MG ORAL
     Route: 048

REACTIONS (20)
  - INTERNATIONAL NORMALISED RATIO INCREASED [None]
  - MULTI-ORGAN FAILURE [None]
  - ACUTE HEPATIC FAILURE [None]
  - BLOOD IRON INCREASED [None]
  - WHITE BLOOD CELL COUNT INCREASED [None]
  - SHOCK [None]
  - METABOLIC ACIDOSIS [None]
  - COAGULOPATHY [None]
  - BLOOD PHOSPHORUS DECREASED [None]
  - ELECTROLYTE IMBALANCE [None]
  - GENERAL PHYSICAL HEALTH DETERIORATION [None]
  - HAEMATEMESIS [None]
  - HYPOTENSION [None]
  - ANAEMIA [None]
  - SINUS TACHYCARDIA [None]
  - MULTIPLE DRUG OVERDOSE [None]
  - RENAL DISORDER [None]
  - HEPATOTOXICITY [None]
  - BLOOD CREATININE INCREASED [None]
  - VOMITING [None]
